FAERS Safety Report 5579392-6 (Version None)
Quarter: 2007Q4

REPORT INFORMATION
  Report Type: 
  Country: None (occurrence: None)
  Receive Date: 20071130
  Receipt Date: 20070627
  Transmission Date: 20080405
  Serious: No
  Sender: FDA-Public Use
  Company Number: US200707001482

PATIENT
  Age: 67 Year
  Sex: Female
  Weight: 89.8 kg

DRUGS (12)
  1. BYETTA [Suspect]
     Indication: TYPE 2 DIABETES MELLITUS
     Dosage: 5 UG, 2/D, SUBCUTANEOUS
     Route: 058
     Dates: start: 20070525
  2. GLIPIZIDE [Concomitant]
  3. METOPROLOL TARTRATE [Concomitant]
  4. CARDIZEM CD [Concomitant]
  5. LEVOTHYROXINE SODIUM [Concomitant]
  6. ZOCOR [Concomitant]
  7. ASPIRIN [Concomitant]
  8. LASIX [Concomitant]
  9. POTASSIUM (POTASSIUM) [Concomitant]
  10. TRAMADOL HCL [Concomitant]
  11. BACLOFEN [Concomitant]
  12. ASCORBIC ACID [Concomitant]

REACTIONS (2)
  - BLOOD GLUCOSE INCREASED [None]
  - INJECTION SITE PAIN [None]
